FAERS Safety Report 6882941-9 (Version None)
Quarter: 2010Q3

REPORT INFORMATION
  Report Type: 
  Country: None (occurrence: None)
  Receive Date: 20100702
  Receipt Date: 20090603
  Transmission Date: 20110219
  Serious: Yes (Other)
  Sender: FDA-Public Use
  Company Number: 2009176366

PATIENT
  Age: 33 Year
  Sex: Male

DRUGS (5)
  1. ZOLOFT [Suspect]
     Dosage: 150 MG, 1X/DAY
     Dates: start: 20060401
  2. EFFEXOR [Suspect]
     Dosage: 75 MG, 1X/DAY
     Dates: start: 20070104
  3. AMBIEN [Suspect]
     Dosage: ORAL
     Route: 048
     Dates: start: 20070104
  4. ALLEGRA-D (FEXOFENADINE, PSEUDOPHEDRINE HYDRCHLORIDE) [Suspect]
     Dosage: ORAL
     Route: 048
  5. ADVIL LIQUI-GELS [Concomitant]
     Dosage: 1000 MG, 1X/DAY

REACTIONS (3)
  - ABNORMAL BEHAVIOUR [None]
  - AMNESIA [None]
  - HYPERSENSITIVITY [None]
